FAERS Safety Report 24372701 (Version 1)
Quarter: 2024Q3

REPORT INFORMATION
  Report Type: Spontaneous
  Country: CN (occurrence: CN)
  Receive Date: 20240927
  Receipt Date: 20240927
  Transmission Date: 20241017
  Serious: Yes (Hospitalization)
  Sender: AMGEN
  Company Number: CN-AMGEN-CHNSP2024189204

PATIENT
  Age: 5 Year
  Sex: Female

DRUGS (2)
  1. BLINCYTO [Suspect]
     Active Substance: BLINATUMOMAB
     Indication: Neoplasm malignant
     Dosage: 0.330 MILLILITER, DRIP
     Route: 042
     Dates: start: 20240828, end: 20240916
  2. PEGASPARGASE [Suspect]
     Active Substance: PEGASPARGASE
     Indication: Neoplasm malignant
     Dosage: 1150.0 INTERNATIONAL UNIT
     Route: 030
     Dates: start: 20240820, end: 20240820

REACTIONS (1)
  - Amylase increased [Recovering/Resolving]

NARRATIVE: CASE EVENT DATE: 20240828
